FAERS Safety Report 7728574-3 (Version None)
Quarter: 2011Q3

REPORT INFORMATION
  Report Type: 
  Country: None (occurrence: None)
  Receive Date: 20110831
  Receipt Date: 20110831
  Transmission Date: 20111222
  Serious: Yes (Life-Threatening)
  Sender: FDA-Public Use
  Company Number: None

PATIENT
  Age: 74 Year
  Sex: Female
  Weight: 92.0802 kg

DRUGS (2)
  1. SINEMET CR [Suspect]
     Indication: PARKINSON'S DISEASE
     Dosage: 2 TABLETS 2X DAILY ORAL
     Route: 048
     Dates: start: 20110311
  2. SINEMET CR [Suspect]
     Indication: CEREBROVASCULAR ACCIDENT
     Dosage: 2 TABLETS 2X DAILY ORAL
     Route: 048
     Dates: start: 20110311

REACTIONS (2)
  - MALAISE [None]
  - PRODUCT SUBSTITUTION ISSUE [None]
